FAERS Safety Report 7266320-0 (Version None)
Quarter: 2011Q1

REPORT INFORMATION
  Report Type: 
  Country: None (occurrence: None)
  Receive Date: 20110131
  Receipt Date: 20110128
  Transmission Date: 20110831
  Serious: Yes (Disabling)
  Sender: FDA-Public Use
  Company Number: NO-PFIZER INC-2011020412

PATIENT
  Age: 64 Year
  Sex: Female

DRUGS (6)
  1. PARACET [Concomitant]
     Indication: PAIN
     Route: 048
  2. TELFAST [Concomitant]
     Indication: HYPERSENSITIVITY
     Route: 048
  3. CHAMPIX [Suspect]
     Indication: SMOKING CESSATION THERAPY
     Route: 048
     Dates: start: 20101122, end: 20110106
  4. LANSOPRAZOLE [Concomitant]
     Indication: REFLUX OESOPHAGITIS
     Route: 048
  5. LIPITOR [Concomitant]
     Indication: BLOOD CHOLESTEROL INCREASED
     Route: 048
  6. IMOVANE [Concomitant]
     Indication: INSOMNIA
     Route: 048

REACTIONS (2)
  - DEPRESSION [None]
  - INDIFFERENCE [None]
